FAERS Safety Report 4386562-1 (Version None)
Quarter: 2004Q2

REPORT INFORMATION
  Report Type: 
  Country: None (occurrence: None)
  Receive Date: 20040623
  Receipt Date: 20040607
  Transmission Date: 20050107
  Serious: Yes (Life-Threatening, Hospitalization)
  Sender: FDA-Public Use
  Company Number: 2004213516DE

PATIENT
  Age: 74 Year
  Sex: Female
  Weight: 55 kg

DRUGS (3)
  1. BEXTRA [Suspect]
     Indication: ARTHRITIS
     Dosage: 20 MG, QD, ORAL
     Route: 048
     Dates: start: 20040408, end: 20040412
  2. LIPIDIL [Suspect]
     Indication: HYPERLIPIDAEMIA
     Dosage: 160 MG, QD, ORAL
     Route: 048
     Dates: start: 20040102, end: 20040412
  3. MARCUMAR [Concomitant]

REACTIONS (10)
  - ASTHENIA [None]
  - DEPRESSED LEVEL OF CONSCIOUSNESS [None]
  - DYSPNOEA EXERTIONAL [None]
  - ESCHERICHIA URINARY TRACT INFECTION [None]
  - HEPATIC FAILURE [None]
  - HYPERKALAEMIA [None]
  - LOOSE STOOLS [None]
  - NODAL RHYTHM [None]
  - RENAL FAILURE ACUTE [None]
  - VERTIGO [None]
